FAERS Safety Report 7301209-X (Version None)
Quarter: 2011Q1

REPORT INFORMATION
  Report Type: 
  Country: None (occurrence: None)
  Receive Date: 20110112
  Receipt Date: 20090402
  Transmission Date: 20110831
  Serious: Yes (Hospitalization)
  Sender: FDA-Public Use
  Company Number: THYM-1001000

PATIENT
  Age: 66 Year
  Sex: Female

DRUGS (1)
  1. THYMOGLOBULIN [Suspect]
     Indication: KIDNEY TRANSPLANT REJECTION
     Dosage: 1.25 MG/KG, INTRAVENOUS
     Route: 042
     Dates: start: 20090401, end: 20090402

REACTIONS (3)
  - CHILLS [None]
  - TACHYCARDIA [None]
  - RESPIRATORY DISTRESS [None]
